FAERS Safety Report 8877974 (Version 1)
Quarter: 2012Q4

REPORT INFORMATION
  Report Type: 
  Country: US (occurrence: US)
  Receive Date: 20121025
  Receipt Date: 20121025
  Transmission Date: 20130627
  Serious: No
  Sender: FDA-Public Use
  Company Number: US-AMGEN-USASP2012020826

PATIENT
  Age: 48 Year
  Sex: Male
  Weight: 117.1 kg

DRUGS (10)
  1. ENBREL [Suspect]
     Indication: PRODUCT USED FOR UNKNOWN INDICATION
     Dosage: 50 mg, qwk
     Route: 058
  2. LEVETIRACETAM [Concomitant]
     Dosage: 500 mg, UNK
  3. METHOTREXATE [Concomitant]
     Dosage: 2.5 mg, UNK
  4. PREDNISONE [Concomitant]
     Dosage: 5 mg, UNK
  5. TEGRETOL [Concomitant]
     Dosage: 200 mg, UNK
  6. FOLIC ACID [Concomitant]
     Dosage: 1 mg, UNK
  7. HYDROCHLOROTH [Concomitant]
     Dosage: 12.5 mg, UNK
  8. CALCIUM 600 [Concomitant]
  9. FISH OIL [Concomitant]
  10. GINGER                             /01646602/ [Concomitant]
     Dosage: 500 mg, UNK

REACTIONS (1)
  - Injection site pain [Unknown]
